FAERS Safety Report 19483617 (Version 1)
Quarter: 2021Q3

REPORT INFORMATION
  Report Type: Spontaneous
  Country: US (occurrence: US)
  Receive Date: 20210701
  Receipt Date: 20210701
  Transmission Date: 20211014
  Serious: No
  Sender: FDA-Public Use
  Company Number: US-ROCHE-2594024

PATIENT
  Age: 30 Year
  Sex: Male

DRUGS (1)
  1. KLONOPIN [Suspect]
     Active Substance: CLONAZEPAM
     Indication: ANXIETY
     Route: 048
     Dates: start: 202004

REACTIONS (9)
  - Amnesia [Unknown]
  - Dysarthria [Unknown]
  - Intentional product use issue [Unknown]
  - Somnolence [Unknown]
  - Confusional state [Unknown]
  - Off label use [Unknown]
  - Anxiety [Unknown]
  - Asthenia [Unknown]
  - Dizziness [Unknown]

NARRATIVE: CASE EVENT DATE: 202004
